FAERS Safety Report 5237480-8 (Version None)
Quarter: 2007Q1

REPORT INFORMATION
  Report Type: 
  Country: None (occurrence: None)
  Receive Date: 20070213
  Receipt Date: 20070201
  Transmission Date: 20070707
  Serious: Yes (Hospitalization)
  Sender: FDA-Public Use
  Company Number: AU-PFIZER INC-2006098961

PATIENT
  Sex: Female
  Weight: 57.9 kg

DRUGS (2)
  1. SU-011,248 [Suspect]
     Indication: MESOTHELIOMA
     Dosage: DAILY DOSE:50MG-FREQ:DAILY  INTERVAL:  28 DAY CYCLE
     Route: 048
  2. SU-011,248 [Suspect]
     Route: 048
     Dates: start: 20060830, end: 20060831

REACTIONS (1)
  - SYNCOPE VASOVAGAL [None]
